FAERS Safety Report 22535899 (Version 1)
Quarter: 2023Q2

REPORT INFORMATION
  Report Type: Spontaneous
  Country: US (occurrence: None)
  Receive Date: 20230606
  Receipt Date: 20230606
  Transmission Date: 20230722
  Serious: Yes (Hospitalization)
  Sender: FDA-Public Use
  Company Number: None

PATIENT
  Age: 53 Year
  Sex: Male

DRUGS (14)
  1. PREVYMIS [Suspect]
     Active Substance: LETERMOVIR
     Indication: Acute myeloid leukaemia
     Dosage: FREQUENCY : DAILY;?
     Route: 048
  2. VALTREX [Concomitant]
     Active Substance: VALACYCLOVIR HYDROCHLORIDE
  3. PANTOPRAZOLE SODIUM [Concomitant]
     Active Substance: PANTOPRAZOLE SODIUM
  4. ALLOPURINOL [Concomitant]
     Active Substance: ALLOPURINOL
  5. CYANOCOBALAMIN [Concomitant]
     Active Substance: CYANOCOBALAMIN
  6. FLUNISOLIDE [Concomitant]
     Active Substance: FLUNISOLIDE
  7. PROCHLORPERAZINE [Concomitant]
     Active Substance: PROCHLORPERAZINE
  8. LEVAQUIN [Concomitant]
     Active Substance: LEVOFLOXACIN
  9. NICOTINE [Concomitant]
     Active Substance: NICOTINE
  10. VORICONAZOLE [Concomitant]
     Active Substance: VORICONAZOLE
  11. MIRALAX [Concomitant]
     Active Substance: POLYETHYLENE GLYCOL 3350
  12. SENNA [Concomitant]
     Active Substance: SENNA LEAF\SENNOSIDES\SENNOSIDES A AND B
  13. ACETAMINOPHEN [Concomitant]
     Active Substance: ACETAMINOPHEN
  14. LINEZOLID [Concomitant]
     Active Substance: LINEZOLID

REACTIONS (1)
  - Stem cell transplant [None]

NARRATIVE: CASE EVENT DATE: 20230519
